FAERS Safety Report 10144427 (Version 1)
Quarter: 2014Q2

REPORT INFORMATION
  Report Type: Spontaneous
  Country: IN (occurrence: IN)
  Receive Date: 20140430
  Receipt Date: 20140430
  Transmission Date: 20141212
  Serious: Yes (Other)
  Sender: FDA-Public Use
  Company Number: IN-MYLANLABS-2014S1009326

PATIENT
  Age: 72 Year
  Sex: Male

DRUGS (1)
  1. METHOTREXATE [Suspect]
     Indication: PSORIASIS
     Dosage: INADVERTENTLY TOOK TWICE THE ADVISED DOSE OF 7.5MG
     Route: 065

REACTIONS (9)
  - Accidental overdose [Recovering/Resolving]
  - Toxicity to various agents [Recovering/Resolving]
  - Bone marrow failure [Recovering/Resolving]
  - Psoriasis [Recovering/Resolving]
  - Skin ulcer [Recovering/Resolving]
  - Pyrexia [Recovering/Resolving]
  - Chills [Recovering/Resolving]
  - Vomiting [Recovering/Resolving]
  - Oral mucosa erosion [Recovering/Resolving]
